FAERS Safety Report 16818216 (Version 3)
Quarter: 2019Q4

REPORT INFORMATION
  Report Type: Report from Study
  Country: CA (occurrence: CA)
  Receive Date: 20190917
  Receipt Date: 20191024
  Transmission Date: 20200122
  Serious: Yes (Other)
  Sender: FDA-Public Use
  Company Number: CA-JNJFOC-20190530854

PATIENT
  Age: 60 Year
  Sex: Female
  Weight: 73.48 kg

DRUGS (1)
  1. REMICADE [Suspect]
     Active Substance: INFLIXIMAB
     Indication: COLITIS ULCERATIVE
     Route: 042

REACTIONS (6)
  - Cataract [Unknown]
  - Headache [Recovering/Resolving]
  - Thyroid mass [Recovering/Resolving]
  - Anxiety [Recovering/Resolving]
  - Vision blurred [Unknown]
  - Infusion related reaction [Recovering/Resolving]

NARRATIVE: CASE EVENT DATE: 20190502
